FAERS Safety Report 8584152 (Version 2)
Quarter: 2013Q1

REPORT INFORMATION
  Report Type: Report from Study
  Country: BR (occurrence: BR)
  Receive Date: 20120529
  Receipt Date: 20130115
  Transmission Date: 20140127
  Serious: Yes (Other)
  Sender: FDA-Public Use
  Company Number: BR-BAYER-2012-051507

PATIENT
  Age: 57 Year
  Sex: Female

DRUGS (11)
  1. BETAFERON [Suspect]
     Indication: RELAPSING-REMITTING MULTIPLE SCLEROSIS
     Dosage: 1 ML, QOD
     Route: 058
     Dates: start: 2007
  2. MANTIDAN [Concomitant]
     Indication: PARAESTHESIA
     Dosage: UNK
     Route: 048
     Dates: start: 2002, end: 201201
  3. MANTIDAN [Concomitant]
     Indication: PAIN IN EXTREMITY
  4. MANTIDAN [Concomitant]
     Indication: GAIT DISTURBANCE
  5. MANTIDAN [Concomitant]
     Indication: BALANCE DISORDER
  6. RIVOTRIL [Concomitant]
     Indication: SLEEP DISORDER THERAPY
     Dosage: 8 GTT, QD
     Route: 048
     Dates: start: 2007, end: 2012
  7. RIVOTRIL [Concomitant]
     Indication: SLEEP DISORDER THERAPY
     Dosage: UNK
     Route: 048
     Dates: start: 2012, end: 2012
  8. RIVOTRIL [Concomitant]
     Indication: SLEEP DISORDER THERAPY
     Dosage: 7 GTT, UNK
     Route: 048
     Dates: start: 2012
  9. UNKNOWN MEDICATION [Concomitant]
     Indication: PARAESTHESIA
     Dosage: UNK
     Route: 048
     Dates: start: 2002, end: 201201
  10. UNKNOWN MEDICATION [Concomitant]
     Indication: PAIN IN EXTREMITY
  11. UNKNOWN MEDICATION [Concomitant]
     Indication: GAIT DISTURBANCE

REACTIONS (10)
  - Toxicity to various agents [Recovered/Resolved]
  - Yellow skin [Recovered/Resolved]
  - Malaise [Recovered/Resolved]
  - Asthenia [Recovered/Resolved]
  - Dysstasia [Recovered/Resolved]
  - Hepatic failure [Recovered/Resolved]
  - Gait disturbance [Recovered/Resolved]
  - Fatigue [Recovered/Resolved]
  - Malaise [Recovered/Resolved]
  - Muscular weakness [Not Recovered/Not Resolved]
